FAERS Safety Report 6372536-8 (Version None)
Quarter: 2009Q3

REPORT INFORMATION
  Report Type: 
  Country: None (occurrence: None)
  Receive Date: 20090924
  Receipt Date: 20080917
  Transmission Date: 20100115
  Serious: Yes (Other)
  Sender: FDA-Public Use
  Company Number: US-ASTRAZENECA-2008UW19337

PATIENT
  Age: 65 Year
  Sex: Female

DRUGS (2)
  1. SEROQUEL [Suspect]
     Dosage: 25 TO 50MG QHS
     Route: 048
  2. ZOLOFT [Concomitant]

REACTIONS (1)
  - TARDIVE DYSKINESIA [None]
